FAERS Safety Report 4453652-4 (Version None)
Quarter: 2004Q3

REPORT INFORMATION
  Report Type: 
  Country: None (occurrence: None)
  Receive Date: 20040920
  Receipt Date: 20040907
  Transmission Date: 20050211
  Serious: Yes (Hospitalization)
  Sender: FDA-Public Use
  Company Number: HQWYE002513SEP04

PATIENT
  Sex: Female
  Weight: 71.9 kg

DRUGS (4)
  1. ETANERCEPT [Suspect]
     Indication: RHEUMATOID ARTHRITIS
     Route: 058
     Dates: start: 20020122
  2. PREDNISOLONE [Concomitant]
     Dosage: 5 MG DAILY
     Route: 048
     Dates: start: 20040424
  3. VOLTAREN [Concomitant]
     Dosage: 75 MG DAILY
     Route: 048
     Dates: start: 20040424
  4. MUCOSTA [Concomitant]
     Dosage: 200 G DAILY
     Route: 048
     Dates: start: 20040729

REACTIONS (1)
  - CALCULUS URETERIC [None]
